FAERS Safety Report 22861861 (Version 2)
Quarter: 2023Q4

REPORT INFORMATION
  Report Type: Spontaneous
  Country: CA (occurrence: CA)
  Receive Date: 20230824
  Receipt Date: 20231026
  Transmission Date: 20240110
  Serious: Yes (Other)
  Sender: FDA-Public Use
  Company Number: CA-BRISTOL-MYERS SQUIBB COMPANY-2023-117278

PATIENT
  Age: 2 Year
  Sex: Female

DRUGS (15)
  1. ORENCIA [Suspect]
     Active Substance: ABATACEPT
     Indication: Prophylaxis against graft versus host disease
  2. ORENCIA [Suspect]
     Active Substance: ABATACEPT
     Indication: Atypical mycobacterial infection
  3. ORENCIA [Suspect]
     Active Substance: ABATACEPT
     Indication: Stem cell transplant
  4. TACROLIMUS [Concomitant]
     Active Substance: TACROLIMUS
     Indication: Prophylaxis against graft versus host disease
  5. TACROLIMUS [Concomitant]
     Active Substance: TACROLIMUS
     Indication: Stem cell transplant
  6. RITUXIMAB [Concomitant]
     Active Substance: RITUXIMAB
     Indication: Prophylaxis against graft versus host disease
  7. RITUXIMAB [Concomitant]
     Active Substance: RITUXIMAB
     Indication: Stem cell transplant
  8. MYCOPHENOLATE MOFETIL [Concomitant]
     Active Substance: MYCOPHENOLATE MOFETIL
     Indication: Prophylaxis against graft versus host disease
  9. MYCOPHENOLATE MOFETIL [Concomitant]
     Active Substance: MYCOPHENOLATE MOFETIL
     Indication: Stem cell transplant
  10. METHOTREXATE [Concomitant]
     Active Substance: METHOTREXATE
     Indication: Prophylaxis against graft versus host disease
  11. METHOTREXATE [Concomitant]
     Active Substance: METHOTREXATE
     Indication: Stem cell transplant
  12. TREOSULFAN [Concomitant]
     Active Substance: TREOSULFAN
     Indication: Bone marrow conditioning regimen
  13. CYCLOPHOSPHAMIDE [Concomitant]
     Active Substance: CYCLOPHOSPHAMIDE
     Indication: Bone marrow conditioning regimen
  14. FLUDARABINE [Concomitant]
     Active Substance: FLUDARABINE PHOSPHATE
     Indication: Bone marrow conditioning regimen
  15. LAPINE T-LYMPHOCYTE IMMUNE GLOBULIN [Concomitant]
     Active Substance: LAPINE T-LYMPHOCYTE IMMUNE GLOBULIN
     Indication: Bone marrow conditioning regimen

REACTIONS (9)
  - Acute graft versus host disease in skin [Unknown]
  - Chronic graft versus host disease in skin [Unknown]
  - Graft versus host disease in gastrointestinal tract [Unknown]
  - Off label use [Unknown]
  - Acute graft versus host disease [Unknown]
  - Cytomegalovirus infection reactivation [Unknown]
  - Hypogammaglobulinaemia [Unknown]
  - Condition aggravated [Unknown]
  - Norovirus infection [Unknown]
